FAERS Safety Report 11694093 (Version 1)
Quarter: 2015Q4

REPORT INFORMATION
  Report Type: Spontaneous
  Country: GB (occurrence: GB)
  Receive Date: 20151103
  Receipt Date: 20151103
  Transmission Date: 20160304
  Serious: Yes (Other)
  Sender: FDA-Public Use
  Company Number: PHHY2015GB138920

PATIENT
  Sex: Male

DRUGS (1)
  1. SIMVASTATIN. [Suspect]
     Active Substance: SIMVASTATIN
     Indication: PRODUCT USED FOR UNKNOWN INDICATION
     Dosage: 40 MG
     Route: 065

REACTIONS (6)
  - Back pain [Recovering/Resolving]
  - Myalgia [Recovering/Resolving]
  - Abdominal pain [Recovering/Resolving]
  - Malaise [Recovering/Resolving]
  - Dyspnoea [Recovering/Resolving]
  - Arthritis [Recovering/Resolving]
